FAERS Safety Report 14693808 (Version 13)
Quarter: 2020Q2

REPORT INFORMATION
  Report Type: Report from Study
  Country: TR (occurrence: TR)
  Receive Date: 20180329
  Receipt Date: 20200403
  Transmission Date: 20200713
  Serious: Yes (Hospitalization)
  Sender: FDA-Public Use
  Company Number: TR-ABBVIE-18K-161-2301659-00

PATIENT
  Age: 67 Year
  Sex: Female
  Weight: 72 kg

DRUGS (15)
  1. DUODOPA [Suspect]
     Active Substance: CARBIDOPA\LEVODOPA
     Indication: PARKINSON^S DISEASE
     Dosage: MD: 3.4 ML CD: 0.8 ML ED: 0.0 ML
     Route: 050
     Dates: start: 20180319, end: 201803
  2. DUODOPA [Suspect]
     Active Substance: CARBIDOPA\LEVODOPA
     Dosage: MD3.4 ML CD 0.7 ML ED 1.0 ML
     Route: 050
     Dates: end: 20180723
  3. DUODOPA [Suspect]
     Active Substance: CARBIDOPA\LEVODOPA
     Dosage: MD: 3.6 ML CD1.0 ML ED 1.0 ML
     Route: 050
     Dates: start: 20180723, end: 20180802
  4. DUODOPA [Suspect]
     Active Substance: CARBIDOPA\LEVODOPA
     Dosage: MD: 3.4 ML CD: 0.9 ML ED: 0.0 ML
     Route: 050
     Dates: start: 20180327, end: 20180329
  5. TEBOKAN [Suspect]
     Active Substance: GINKGO
     Indication: PRODUCT USED FOR UNKNOWN INDICATION
     Route: 065
     Dates: start: 201805, end: 2018
  6. DUODOPA [Suspect]
     Active Substance: CARBIDOPA\LEVODOPA
     Dosage: MD 3.6 ML CD: 0.9 ML ED 1.0 ML
     Route: 050
     Dates: start: 20180329, end: 2018
  7. DUODOPA [Suspect]
     Active Substance: CARBIDOPA\LEVODOPA
     Dosage: MD: 3.5 ML CD: 0.9 ML ED 1.0 ML
     Route: 050
     Dates: start: 20180331, end: 201804
  8. DUODOPA [Suspect]
     Active Substance: CARBIDOPA\LEVODOPA
     Dosage: MD: 3.4 ML CD: 0.8 ML ED 1.0 ML
     Route: 050
     Dates: start: 20180405, end: 20180417
  9. DUODOPA [Suspect]
     Active Substance: CARBIDOPA\LEVODOPA
     Dosage: MD 3.3 ML CD: 0.8 ML ED 0.5 ML
     Route: 050
     Dates: start: 20180417, end: 20180511
  10. SPASMEX [Concomitant]
     Indication: URINARY INCONTINENCE
     Route: 048
     Dates: start: 2016
  11. DUODOPA [Suspect]
     Active Substance: CARBIDOPA\LEVODOPA
     Dosage: MD: 3.4 ML CD: 0.8 ML ED: 0.0 ML
     Route: 050
     Dates: start: 20180322, end: 20180327
  12. CITOLES [Concomitant]
     Active Substance: ESCITALOPRAM OXALATE
     Indication: RELAXATION THERAPY
     Route: 048
  13. PK MERZ [Concomitant]
     Active Substance: AMANTADINE SULFATE
     Indication: PARKINSON^S DISEASE
     Route: 048
  14. DUODOPA [Suspect]
     Active Substance: CARBIDOPA\LEVODOPA
     Dosage: MD: 3.40 ML CD 0.7 ML ED 1.00 ML
     Route: 050
     Dates: start: 20180511
  15. DUODOPA [Suspect]
     Active Substance: CARBIDOPA\LEVODOPA
     Dosage: MD: 3.60 ML, CD: 1.5 ML, ED: 1.0 ML
     Route: 050
     Dates: start: 20180903, end: 20200320

REACTIONS (17)
  - Lung infiltration [Recovered/Resolved]
  - Contusion [Recovered/Resolved]
  - Peripheral swelling [Recovered/Resolved]
  - Urinary tract infection [Recovered/Resolved]
  - Dyskinesia [Recovered/Resolved]
  - Bradykinesia [Recovered/Resolved]
  - Erythema [Recovered/Resolved]
  - Bradykinesia [Recovered/Resolved]
  - Dyskinesia [Recovered/Resolved]
  - Fall [Recovered/Resolved]
  - Peripheral swelling [Unknown]
  - Balance disorder [Not Recovered/Not Resolved]
  - Complication associated with device [Unknown]
  - Fall [Recovered/Resolved]
  - Dyskinesia [Recovered/Resolved]
  - Device occlusion [Recovered/Resolved]
  - Fall [Unknown]

NARRATIVE: CASE EVENT DATE: 2018
